FAERS Safety Report 6360780-5 (Version None)
Quarter: 2009Q3

REPORT INFORMATION
  Report Type: 
  Country: None (occurrence: None)
  Receive Date: 20090918
  Receipt Date: 20090907
  Transmission Date: 20100115
  Serious: Yes (Other)
  Sender: FDA-Public Use
  Company Number: FR-WYE-H10933609

PATIENT
  Sex: Female

DRUGS (9)
  1. EUPANTOL [Suspect]
     Route: 042
     Dates: start: 20090312, end: 20090325
  2. FLAGYL [Suspect]
     Dosage: 1500 MG, FREQUENCY UNSPECIFIED
     Route: 042
     Dates: start: 20090313, end: 20090323
  3. ACETAMINOPHEN [Concomitant]
     Dosage: 4 GM, FREQUENCY UNSPECIFIED
     Route: 042
     Dates: start: 20090315
  4. TRANXENE [Concomitant]
     Dosage: UNKNOWN
     Route: 048
  5. TRANXENE [Concomitant]
     Dosage: UNKNOWN
     Route: 042
  6. LOVENOX [Concomitant]
     Dosage: 2000 IU, FREQUENCY UNSPECIFIED
     Route: 058
  7. SPASFON [Concomitant]
     Dosage: 6 DOSAGE FORMS, FREQUENCY UNSPECIFIED
     Route: 042
     Dates: start: 20090314, end: 20090324
  8. ROCEPHIN [Suspect]
     Dosage: 1 GM, FREQUENCY UNSPECIFIED
     Route: 042
     Dates: start: 20090312, end: 20090323
  9. OFLOCET [Suspect]
     Dosage: 400 MG, FREQUENCY UNSPECIFIED
     Route: 042
     Dates: start: 20090313, end: 20090323

REACTIONS (4)
  - BLOOD ALKALINE PHOSPHATASE INCREASED [None]
  - GAMMA-GLUTAMYLTRANSFERASE INCREASED [None]
  - HEPATIC ENZYME INCREASED [None]
  - PANCREATITIS [None]
